FAERS Safety Report 15917698 (Version 2)
Quarter: 2019Q1

REPORT INFORMATION
  Report Type: Spontaneous
  Country: ES (occurrence: ES)
  Receive Date: 20190205
  Receipt Date: 20190205
  Transmission Date: 20190417
  Serious: Yes (Other)
  Sender: FDA-Public Use
  Company Number: PHHY2018ES115933

PATIENT
  Age: 19 Year
  Sex: Female

DRUGS (5)
  1. OLANZAPINE. [Interacting]
     Active Substance: OLANZAPINE
     Dosage: 5 MG, QD
     Route: 065
  2. OLANZAPINE. [Interacting]
     Active Substance: OLANZAPINE
     Indication: SCHIZOPHRENIA
     Dosage: 40 MG, QD
     Route: 065
  3. HALOPERIDOL. [Interacting]
     Active Substance: HALOPERIDOL
     Indication: SCHIZOPHRENIA
     Dosage: 30 MG, QD
     Route: 065
  4. CICLOSPORIN [Suspect]
     Active Substance: CYCLOSPORINE
     Indication: SCHIZOPHRENIA
     Dosage: 600 MG, QD
     Route: 065
  5. PALIPERIDONE PALMITATE [Interacting]
     Active Substance: PALIPERIDONE PALMITATE
     Indication: SCHIZOPHRENIA
     Dosage: 150 MG, QMO
     Route: 065

REACTIONS (3)
  - Antipsychotic drug level increased [Unknown]
  - Drug ineffective [Unknown]
  - Drug interaction [Unknown]
